FAERS Safety Report 23987925 (Version 2)
Quarter: 2024Q2

REPORT INFORMATION
  Report Type: Spontaneous
  Country: DE (occurrence: DE)
  Receive Date: 20240619
  Receipt Date: 20240625
  Transmission Date: 20240715
  Serious: Yes (Hospitalization, Other)
  Sender: FDA-Public Use
  Company Number: DE-BAYER-2024A084790

PATIENT
  Age: 90 Year
  Sex: Female

DRUGS (1)
  1. XARELTO [Suspect]
     Active Substance: RIVAROXABAN
     Indication: Product used for unknown indication
     Dosage: UNK
     Route: 048

REACTIONS (8)
  - Spinal cord haemorrhage [Not Recovered/Not Resolved]
  - Head injury [Unknown]
  - Paralysis [Unknown]
  - Mental impairment [Unknown]
  - Unresponsive to stimuli [Unknown]
  - Myelopathy [Not Recovered/Not Resolved]
  - Skin injury [Unknown]
  - Nerve injury [Unknown]

NARRATIVE: CASE EVENT DATE: 20200418
